FAERS Safety Report 4906069-X (Version None)
Quarter: 2006Q1

REPORT INFORMATION
  Report Type: 
  Country: None (occurrence: None)
  Receive Date: 20060207
  Receipt Date: 20060120
  Transmission Date: 20060701
  Serious: Yes (Life-Threatening, Hospitalization)
  Sender: FDA-Public Use
  Company Number: 221674

PATIENT
  Age: 56 Year
  Sex: Male

DRUGS (6)
  1. AVASTIN [Suspect]
     Indication: COLON CANCER
     Dosage: 630 MG, Q3W, INTRAVENOUS
     Route: 042
     Dates: start: 20050830, end: 20051025
  2. CAPECITABINE (CAPECITABINE) [Suspect]
     Indication: COLON CANCER
     Dosage: 2000 MG, Q2W, ORAL
     Route: 048
     Dates: start: 20050830, end: 20051025
  3. OXALIPLATIN (OXALIPLATIN) [Suspect]
     Indication: COLON CANCER
     Dosage: 257 MG, Q3W, INTRAVENOUS
     Route: 042
     Dates: start: 20050830, end: 20051025
  4. ACETAMINOPHEN [Concomitant]
  5. VITAMIN B6 [Concomitant]
  6. NEXIUM [Concomitant]

REACTIONS (10)
  - ASCITES [None]
  - BLOOD CREATININE INCREASED [None]
  - CHOLECYSTITIS INFECTIVE [None]
  - DIARRHOEA [None]
  - ESCHERICHIA INFECTION [None]
  - ILEUS PARALYTIC [None]
  - PNEUMONIA ASPIRATION [None]
  - SEPSIS [None]
  - SMALL INTESTINAL OBSTRUCTION [None]
  - SUBDIAPHRAGMATIC ABSCESS [None]
